FAERS Safety Report 7235976-0 (Version None)
Quarter: 2011Q1

REPORT INFORMATION
  Report Type: 
  Country: None (occurrence: None)
  Receive Date: 20110120
  Receipt Date: 20110110
  Transmission Date: 20110831
  Serious: Yes (Hospitalization)
  Sender: FDA-Public Use
  Company Number: B0692795A

PATIENT
  Sex: Male

DRUGS (3)
  1. EZETROL [Concomitant]
     Dates: end: 20101118
  2. KARDEGIC [Suspect]
     Indication: PROPHYLAXIS
     Route: 048
     Dates: end: 20101118
  3. OMACOR [Suspect]
     Route: 048
     Dates: end: 20101118

REACTIONS (4)
  - ANAEMIA [None]
  - DUODENAL ULCER HAEMORRHAGE [None]
  - MELAENA [None]
  - OFF LABEL USE [None]
